FAERS Safety Report 17464340 (Version 1)
Quarter: 2020Q1

REPORT INFORMATION
  Report Type: Spontaneous
  Country: ZA (occurrence: ZA)
  Receive Date: 20200226
  Receipt Date: 20200226
  Transmission Date: 20200409
  Serious: Yes (Other)
  Sender: FDA-Public Use
  Company Number: ZA-GLAXOSMITHKLINE-ZA2020030440

PATIENT
  Sex: Male

DRUGS (1)
  1. GRANDPA POWDER [Suspect]
     Active Substance: ACETAMINOPHEN\ASPIRIN\CAFFEINE
     Indication: HEADACHE
     Dosage: UNK

REACTIONS (2)
  - Extra dose administered [Unknown]
  - Headache [Unknown]

NARRATIVE: CASE EVENT DATE: 20200219
